FAERS Safety Report 17226781 (Version 1)
Quarter: 2020Q1

REPORT INFORMATION
  Report Type: Report from Study
  Country: None (occurrence: US)
  Receive Date: 20200102
  Receipt Date: 20200102
  Transmission Date: 20200409
  Serious: Yes (Hospitalization)
  Sender: FDA-Public Use
  Company Number: US-ABBVIE-19K-163-3215493-00

PATIENT
  Sex: Female

DRUGS (1)
  1. VENCLEXTA [Suspect]
     Active Substance: VENETOCLAX
     Indication: ACUTE MYELOID LEUKAEMIA
     Route: 048
     Dates: start: 20191209

REACTIONS (7)
  - Ovarian cyst [Not Recovered/Not Resolved]
  - Fatigue [Unknown]
  - Loss of personal independence in daily activities [Not Recovered/Not Resolved]
  - Vaginal haemorrhage [Unknown]
  - Dyspnoea [Unknown]
  - Constipation [Unknown]
  - Abdominal discomfort [Unknown]

NARRATIVE: CASE EVENT DATE: 2019
